FAERS Safety Report 9716837 (Version 1)
Quarter: 2013Q4

REPORT INFORMATION
  Report Type: Spontaneous
  Country: US (occurrence: US)
  Receive Date: 20131127
  Receipt Date: 20131127
  Transmission Date: 20140711
  Serious: Yes (Hospitalization, Other)
  Sender: FDA-Public Use
  Company Number: US-BAYER-2013-142810

PATIENT
  Age: 78 Year
  Sex: Female

DRUGS (8)
  1. ALEVE CAPLET [Suspect]
     Dosage: UNK
  2. BAYER GENUINE ASPIRIN ORIGINAL STRENGTH [Suspect]
     Dosage: UNK
  3. COZAAR [Concomitant]
     Dosage: UNK
  4. ZOCOR [Concomitant]
     Dosage: UNK
  5. AZOPT [Concomitant]
     Dosage: UNK
  6. SYNTHROID [Concomitant]
     Dosage: UNK
  7. PRILOSEC [Concomitant]
     Dosage: UNK
  8. SINGULAIR [Concomitant]
     Dosage: UNK

REACTIONS (5)
  - Cerebrovascular accident [None]
  - Colitis ulcerative [None]
  - Dehydration [None]
  - Abdominal pain [None]
  - Diarrhoea [None]
